FAERS Safety Report 5053777-9 (Version None)
Quarter: 2006Q3

REPORT INFORMATION
  Report Type: 
  Country: None (occurrence: None)
  Receive Date: 20060712
  Receipt Date: 20060628
  Transmission Date: 20061208
  Serious: Yes (Other)
  Sender: FDA-Public Use
  Company Number: 2006079766

PATIENT
  Age: 59 Year
  Sex: Female

DRUGS (3)
  1. ZARONTIN [Suspect]
     Indication: EPILEPSY
     Dosage: 250 MG (250 MG, 1 IN 1 D), ORAL
     Route: 048
  2. ETHOSUXIMIDE [Suspect]
     Indication: CONVULSION
  3. PHENOBARBITAL TAB [Concomitant]

REACTIONS (10)
  - APHASIA [None]
  - CEREBROVASCULAR ACCIDENT [None]
  - CONVULSION [None]
  - COORDINATION ABNORMAL [None]
  - FEELING ABNORMAL [None]
  - MALAISE [None]
  - MOVEMENT DISORDER [None]
  - NERVOUSNESS [None]
  - THERAPEUTIC RESPONSE UNEXPECTED WITH DRUG SUBSTITUTION [None]
  - VIRAL INFECTION [None]
